FAERS Safety Report 9011953 (Version 1)
Quarter: 2012Q4

REPORT INFORMATION
  Report Type: Spontaneous
  Country: CA (occurrence: None)
  Receive Date: 20121228
  Receipt Date: 20121228
  Transmission Date: 20130627
  Serious: Yes (Hospitalization)
  Sender: FDA-Public Use
  Company Number: FK201204142

PATIENT
  Age: 76 Year
  Sex: Male
  Weight: 89.81 kg

DRUGS (2)
  1. VANCOMYCIN HYDROCHLORIDE [Suspect]
     Indication: WOUND INFECTION STAPHYLOCOCCAL
     Route: 042
     Dates: start: 20121016, end: 20121110
  2. RIFAMPIN [Suspect]
     Indication: WOUND INFECTION STAPHYLOCOCCAL

REACTIONS (7)
  - Swelling [None]
  - Wound drainage [None]
  - Rash [None]
  - Erythema [None]
  - Skin exfoliation [None]
  - Pruritus [None]
  - Eosinophil count increased [None]
